FAERS Safety Report 9124203 (Version 2)
Quarter: 2013Q1

REPORT INFORMATION
  Report Type: Spontaneous
  Country: SE (occurrence: SE)
  Receive Date: 20130227
  Receipt Date: 20130308
  Transmission Date: 20140127
  Serious: Yes (Other)
  Sender: FDA-Public Use
  Company Number: SE-TEVA-387974ISR

PATIENT
  Age: 46 Year
  Sex: Male

DRUGS (1)
  1. DICLOFENAC [Suspect]

REACTIONS (1)
  - Renal failure [Unknown]
